FAERS Safety Report 12386643 (Version 1)
Quarter: 2016Q2

REPORT INFORMATION
  Report Type: Spontaneous
  Country: US (occurrence: US)
  Receive Date: 20160519
  Receipt Date: 20160519
  Transmission Date: 20160815
  Serious: No
  Sender: FDA-Public Use
  Company Number: US-TRIS PHARMA, INC.-1052498

PATIENT
  Age: 73 Year
  Sex: Female
  Weight: 65.91 kg

DRUGS (1)
  1. DEXTROMETHORPHAN POLISTIREX ER OS [Suspect]
     Active Substance: DEXTROMETHORPHAN HYDROBROMIDE
     Indication: COUGH
     Route: 048
     Dates: start: 20160222

REACTIONS (2)
  - Drug administration error [Unknown]
  - Drug ineffective [Unknown]
